FAERS Safety Report 4615349-7 (Version None)
Quarter: 2005Q1

REPORT INFORMATION
  Report Type: 
  Country: None (occurrence: None)
  Receive Date: 20050317
  Receipt Date: 20050307
  Transmission Date: 20050727
  Serious: Yes (Hospitalization)
  Sender: FDA-Public Use
  Company Number: 2005AP01063

PATIENT
  Age: 73 Year
  Sex: Male
  Weight: 48 kg

DRUGS (6)
  1. OMEPRAL [Suspect]
     Indication: GASTRIC MUCOSAL LESION
     Dosage: 20 MG DAILY PO
     Route: 048
     Dates: start: 20040920, end: 20050105
  2. OMEPRAL [Suspect]
     Indication: PROPHYLAXIS
     Dosage: 20 MG DAILY PO
     Route: 048
     Dates: start: 20040920, end: 20050105
  3. OMEPRAL [Suspect]
     Indication: ULCER HAEMORRHAGE
     Dosage: 20 MG DAILY PO
     Route: 048
     Dates: start: 20040920, end: 20050105
  4. PLETAL [Concomitant]
  5. ALFAROL [Concomitant]
  6. HALCION [Concomitant]

REACTIONS (10)
  - DISSEMINATED INTRAVASCULAR COAGULATION [None]
  - DUODENAL ULCER [None]
  - DUODENITIS [None]
  - GANGRENE [None]
  - GASTRIC ULCER [None]
  - GASTRITIS ATROPHIC [None]
  - GASTRITIS EROSIVE [None]
  - PLATELET COUNT DECREASED [None]
  - PYOTHORAX [None]
  - RENAL FAILURE CHRONIC [None]
